FAERS Safety Report 13738604 (Version 1)
Quarter: 2017Q3

REPORT INFORMATION
  Report Type: Spontaneous
  Country: US (occurrence: US)
  Receive Date: 20170710
  Receipt Date: 20170710
  Transmission Date: 20171127
  Serious: Yes (Other)
  Sender: FDA-Public Use
  Company Number: US-SAOL THERAPEUTICS-2016SAO01319

PATIENT
  Sex: Male

DRUGS (6)
  1. BACLOFEN. [Suspect]
     Active Substance: BACLOFEN
     Indication: LUMBAR RADICULOPATHY
     Dosage: 149 MG, \DAY
  2. BACLOFEN. [Suspect]
     Active Substance: BACLOFEN
     Indication: PAIN
     Dosage: 150 ?G, \DAY
  3. MARCAINE [Suspect]
     Active Substance: BUPIVACAINE HYDROCHLORIDE
     Dosage: 9.9 MG, \DAY
  4. MORPHINE [Suspect]
     Active Substance: MORPHINE
     Dosage: 9.999 MG, \DAY
  5. MORPHINE [Suspect]
     Active Substance: MORPHINE
     Dosage: 10 MG, \DAY
  6. MARCAINE [Suspect]
     Active Substance: BUPIVACAINE HYDROCHLORIDE
     Dosage: 10 MG, \DAY

REACTIONS (7)
  - Off label use [Unknown]
  - Complication associated with device [Recovered/Resolved]
  - Device battery issue [Unknown]
  - Pain [Recovering/Resolving]
  - Device failure [Unknown]
  - Drug withdrawal syndrome [Unknown]
  - Anxiety [Recovering/Resolving]

NARRATIVE: CASE EVENT DATE: 201612
